FAERS Safety Report 13084959 (Version 1)
Quarter: 2017Q1

REPORT INFORMATION
  Report Type: Spontaneous
  Country: US (occurrence: US)
  Receive Date: 20170104
  Receipt Date: 20170104
  Transmission Date: 20170428
  Serious: No
  Sender: FDA-Public Use
  Company Number: None

PATIENT
  Age: 70 Year
  Sex: Female

DRUGS (1)
  1. CAPECITABINE 500MG ACCORD [Suspect]
     Active Substance: CAPECITABINE
     Indication: METASTATIC NEOPLASM
     Dosage: FREQUENCY - TWICE A DAY FOR 14 DAYS THEN OFF
     Route: 048
     Dates: start: 20160726

REACTIONS (2)
  - Stomatitis [None]
  - Onychomadesis [None]

NARRATIVE: CASE EVENT DATE: 20161230
